FAERS Safety Report 8776579 (Version 3)
Quarter: 2013Q1

REPORT INFORMATION
  Report Type: Report from Study
  Country: ES (occurrence: ES)
  Receive Date: 20120911
  Receipt Date: 20130108
  Transmission Date: 20140127
  Serious: Yes (Death, Other)
  Sender: FDA-Public Use
  Company Number: ES-ROCHE-1119801

PATIENT
  Age: 60 Month
  Sex: Male

DRUGS (2)
  1. ALTEPLASE [Suspect]
     Indication: VENOUS THROMBOSIS
     Dosage: GIVEN BOLUS THEN AT A DOSE OF 0.03 MG/KG/HOUR AS CONTINOUS INFUSION
     Route: 042
  2. HEPARIN [Suspect]
     Indication: VENOUS THROMBOSIS
     Route: 042

REACTIONS (3)
  - Haemorrhage [Fatal]
  - Endotracheal intubation complication [Fatal]
  - Anaemia [Unknown]
